FAERS Safety Report 4903304-9 (Version None)
Quarter: 2006Q1

REPORT INFORMATION
  Report Type: 
  Country: None (occurrence: None)
  Receive Date: 20060206
  Receipt Date: 20060206
  Transmission Date: 20060701
  Serious: No
  Sender: FDA-Public Use
  Company Number: None

PATIENT
  Age: 49 Year
  Sex: Female
  Weight: 61.2356 kg

DRUGS (3)
  1. GAMUNEX [Suspect]
     Indication: MYASTHENIA GRAVIS
     Dosage: 30 GRAMS TO CONSECUTIVE DAY INFUSIONS EVERY 4 WEEKS PIV
     Route: 042
     Dates: start: 20050926
  2. GAMUNEX [Suspect]
     Indication: MYASTHENIA GRAVIS
     Dosage: 30 GRAMS TO CONSECUTIVE DAY INFUSIONS EVERY 4 WEEKS PIV
     Route: 042
     Dates: start: 20050927
  3. GAMUNEX [Suspect]

REACTIONS (4)
  - CHEST PAIN [None]
  - HEADACHE [None]
  - NAUSEA [None]
  - VOMITING [None]
